FAERS Safety Report 9146756 (Version 2)
Quarter: 2013Q1

REPORT INFORMATION
  Report Type: Spontaneous
  Country: IN (occurrence: None)
  Receive Date: 20130131
  Receipt Date: 20130208
  Transmission Date: 20140127
  Serious: Yes (Death, Life-Threatening, Other)
  Sender: FDA-Public Use
  Company Number: AUR-APL-2013-01052

PATIENT
  Age: 12 Year
  Sex: Male

DRUGS (3)
  1. LAMOTRIGINE (LAMOTRIGINE) [Suspect]
     Indication: EPILEPSY
     Dosage: (50  MG,  1 D),  ORAL? - STOPPED
     Route: 048
  2. DIVALPROEX [Suspect]
     Indication: EPILEPSY
     Dosage: (300  MG,  1 D),  UNKNOWN? - STOPPED
  3. CLONAZEPAM (CLONAZEPAM) [Concomitant]

REACTIONS (4)
  - Stevens-Johnson syndrome [None]
  - Delirium [None]
  - Dyspnoea [None]
  - Toxic epidermal necrolysis [None]
